FAERS Safety Report 10803600 (Version 1)
Quarter: 2015Q1

REPORT INFORMATION
  Report Type: Spontaneous
  Country: US (occurrence: US)
  Receive Date: 20150217
  Receipt Date: 20150217
  Transmission Date: 20150721
  Serious: Yes (Death, Other)
  Sender: FDA-Public Use
  Company Number: US-TEVA-540405USA

PATIENT
  Age: 7 Year
  Sex: Male

DRUGS (6)
  1. ONDANSETRON [Concomitant]
     Active Substance: ONDANSETRON
     Route: 065
  2. PARACETAMOL [Interacting]
     Active Substance: ACETAMINOPHEN
     Indication: PYREXIA
     Dosage: 15 MG/KG (FROM 2ND DOSE)
     Route: 065
  3. MONTELUKAST [Concomitant]
     Active Substance: MONTELUKAST SODIUM
     Route: 065
  4. FENRETINIDE [Interacting]
     Active Substance: FENRETINIDE
     Indication: NEUROBLASTOMA
     Dosage: 1110 MG/M2/DAY TILL 119 HOURS (120 HOURS SCHEDULED)
     Route: 041
     Dates: start: 201002
  5. CEFTRIAXONE. [Suspect]
     Active Substance: CEFTRIAXONE
     Route: 042
  6. PARACETAMOL [Interacting]
     Active Substance: ACETAMINOPHEN
     Indication: PYREXIA
     Dosage: 10 MG/KG EVERY 4 HOURS
     Route: 065

REACTIONS (9)
  - Coagulopathy [Unknown]
  - Anuria [Unknown]
  - Drug-induced liver injury [Fatal]
  - Circulatory collapse [Unknown]
  - Pleural effusion [Unknown]
  - Drug interaction [Unknown]
  - Atelectasis [Unknown]
  - Metabolic acidosis [Unknown]
  - Epistaxis [Unknown]
